FAERS Safety Report 9541414 (Version 2)
Quarter: 2014Q1

REPORT INFORMATION
  Report Type: Spontaneous
  Country: US (occurrence: None)
  Receive Date: 20130524
  Receipt Date: 20130724
  Transmission Date: 20141002
  Serious: No
  Sender: FDA-Public Use
  Company Number: PHEH2013US003198

PATIENT
  Age: 40 Year
  Sex: Female
  Weight: 90.7 kg

DRUGS (15)
  1. GILENYA [Suspect]
     Indication: RELAPSING-REMITTING MULTIPLE SCLEROSIS
     Route: 048
     Dates: start: 20130122
  2. AMFETAMINE W/DEXAMFETAMINE (AMFETAMMINE, DEXAMFETAMINE) [Concomitant]
  3. BACLOFEN (BACLOFEN) [Concomitant]
  4. DIAZEPAM (DIAZEPAM) [Concomitant]
  5. GABAPENTI (GABAPENTIN) [Concomitant]
  6. IBUPROFEN (IBUPROFEN) [Concomitant]
  7. LEVOTHYROXINE SODIUM (LEVOTHYROXINE SODIUM) [Concomitant]
  8. LORATADIN (LORATADINE) [Concomitant]
  9. MAXALT MLT (RIZATRIPTAN BENZOATE) [Concomitant]
  10. MECLIZINE HCL (MECLOZINE HYDROCHLORIDE) [Concomitant]
  11. OMEPRAZOLE (OMEPRAZOLE) [Concomitant]
  12. SUMAVEL DOSEPRO (SUMATRIPTAN SUCCINATE) [Concomitant]
  13. TEMAZEPAM (TEMAZEPAM) [Concomitant]
  14. VENLAFAXINE HCL (VENLAFAXINE HYDROCHLORIDE) [Concomitant]
  15. CHANTIX (VARENICLINE TARTRATE) [Concomitant]

REACTIONS (19)
  - Somnolence [None]
  - Headache [None]
  - Temperature intolerance [None]
  - Amnesia [None]
  - Initial insomnia [None]
  - Neck pain [None]
  - Night sweats [None]
  - Wheezing [None]
  - Chest pain [None]
  - Chest discomfort [None]
  - Palpitations [None]
  - Fatigue [None]
  - Visual impairment [None]
  - Constipation [None]
  - Arthralgia [None]
  - Muscular weakness [None]
  - Anxiety [None]
  - Dyspnoea [None]
  - Asthenia [None]
